FAERS Safety Report 18431550 (Version 1)
Quarter: 2020Q4

REPORT INFORMATION
  Report Type: Spontaneous
  Country: GB (occurrence: GB)
  Receive Date: 20201027
  Receipt Date: 20201027
  Transmission Date: 20210114
  Serious: Yes (Death, Other)
  Sender: FDA-Public Use
  Company Number: GB-AMGEN-GBRSP2020170856

PATIENT

DRUGS (3)
  1. FILGRASTIM [Suspect]
     Active Substance: FILGRASTIM
     Indication: HAEMATOPOIETIC STEM CELL MOBILISATION
     Dosage: 10 MICROGRAM/KILOGRAM, QD
     Route: 065
  2. FILGRASTIM [Suspect]
     Active Substance: FILGRASTIM
     Dosage: 15 MICROGRAM/KILOGRAM, QD
     Route: 065
  3. PLERIXAFOR [Concomitant]
     Active Substance: PLERIXAFOR
     Dosage: 160, 240 AND 320 MICROGRAM PER KILOGRAM
     Route: 058

REACTIONS (6)
  - Hypokalaemia [Unknown]
  - Therapy non-responder [Unknown]
  - Adverse event [Unknown]
  - Disease progression [Fatal]
  - Injection site reaction [Unknown]
  - Blood bicarbonate increased [Unknown]
